FAERS Safety Report 9075725 (Version 1)
Quarter: 2013Q1

REPORT INFORMATION
  Report Type: Spontaneous
  Country: PR (occurrence: PR)
  Receive Date: 20130131
  Receipt Date: 20130131
  Transmission Date: 20140127
  Serious: No
  Sender: FDA-Public Use
  Company Number: PR-ABBOTT-12P-131-1001958-00

PATIENT
  Age: 70 None
  Sex: Male
  Weight: 59.93 kg

DRUGS (5)
  1. HUMIRA [Suspect]
     Indication: RHEUMATOID ARTHRITIS
     Route: 058
     Dates: end: 201210
  2. HUMIRA [Suspect]
     Route: 058
     Dates: start: 20121114
  3. ULTRAM [Concomitant]
     Indication: PAIN
     Route: 048
  4. NEURONTIN [Concomitant]
     Indication: PRODUCT USED FOR UNKNOWN INDICATION
     Route: 048
  5. TUMS [Concomitant]
     Indication: GASTRITIS
     Route: 048

REACTIONS (4)
  - Endodontic procedure [Not Recovered/Not Resolved]
  - Tooth extraction [Unknown]
  - Tooth infection [Recovered/Resolved]
  - Bronchitis [Recovering/Resolving]
